FAERS Safety Report 11838742 (Version 1)
Quarter: 2015Q4

REPORT INFORMATION
  Report Type: Spontaneous
  Country: US (occurrence: US)
  Receive Date: 20151215
  Receipt Date: 20151215
  Transmission Date: 20160305
  Serious: No
  Sender: FDA-Public Use
  Company Number: US-SA-2015SA148410

PATIENT
  Age: 78 Year
  Sex: Female

DRUGS (1)
  1. FERRLECIT [Suspect]
     Active Substance: SODIUM FERRIC GLUCONATE COMPLEX
     Indication: IRON DEFICIENCY ANAEMIA
     Dosage: 125 MG IN 100ML OF NORMAL SALINE.
     Route: 065
     Dates: start: 20150920, end: 20150921

REACTIONS (1)
  - Extravasation [Unknown]
